FAERS Safety Report 17815890 (Version 1)
Quarter: 2020Q2

REPORT INFORMATION
  Report Type: Spontaneous
  Country: CA (occurrence: CA)
  Receive Date: 20200522
  Receipt Date: 20200522
  Transmission Date: 20200714
  Serious: Yes (Hospitalization, Other)
  Sender: FDA-Public Use
  Company Number: CA-ROCHE-2597924

PATIENT

DRUGS (21)
  1. TRIAMCINOLONE ACETONIDE. [Suspect]
     Active Substance: TRIAMCINOLONE ACETONIDE
     Indication: SEASONAL ALLERGY
     Route: 014
  2. ANAKINRA [Suspect]
     Active Substance: ANAKINRA
     Indication: JUVENILE IDIOPATHIC ARTHRITIS
     Route: 058
  3. ENBREL [Suspect]
     Active Substance: ETANERCEPT
     Indication: JUVENILE IDIOPATHIC ARTHRITIS
     Route: 058
  4. GAMMAGARD [Suspect]
     Active Substance: HUMAN IMMUNOGLOBULIN G
     Indication: JUVENILE IDIOPATHIC ARTHRITIS
     Route: 042
  5. ENBREL [Suspect]
     Active Substance: ETANERCEPT
     Route: 058
  6. HYDROXYCHLOROQUINE [Suspect]
     Active Substance: HYDROXYCHLOROQUINE
     Indication: JUVENILE IDIOPATHIC ARTHRITIS
     Route: 048
  7. APO-NAPROXEN [Suspect]
     Active Substance: NAPROXEN
     Indication: JUVENILE IDIOPATHIC ARTHRITIS
     Route: 065
  8. HUMIRA [Suspect]
     Active Substance: ADALIMUMAB
     Indication: JUVENILE IDIOPATHIC ARTHRITIS
     Route: 058
  9. INFLIXIMAB [Suspect]
     Active Substance: INFLIXIMAB
     Indication: JUVENILE IDIOPATHIC ARTHRITIS
     Route: 042
  10. NAPROXEN. [Suspect]
     Active Substance: NAPROXEN
     Indication: JUVENILE IDIOPATHIC ARTHRITIS
     Route: 065
  11. ORENCIA [Suspect]
     Active Substance: ABATACEPT
     Indication: JUVENILE IDIOPATHIC ARTHRITIS
     Route: 042
  12. PREDNISONE. [Suspect]
     Active Substance: PREDNISONE
     Route: 048
  13. TRIAMCINOLONE [Suspect]
     Active Substance: TRIAMCINOLONE
     Indication: JUVENILE IDIOPATHIC ARTHRITIS
     Route: 058
  14. TRIAMCINOLONE ACETONIDE. [Suspect]
     Active Substance: TRIAMCINOLONE ACETONIDE
     Indication: JUVENILE IDIOPATHIC ARTHRITIS
  15. APO-PREDNISONE [Suspect]
     Active Substance: PREDNISONE
     Indication: JUVENILE IDIOPATHIC ARTHRITIS
     Route: 048
  16. SULFASALAZINE. [Suspect]
     Active Substance: SULFASALAZINE
     Indication: JUVENILE IDIOPATHIC ARTHRITIS
     Route: 048
  17. TRIAMCINOLONE ACETONIDE. [Suspect]
     Active Substance: TRIAMCINOLONE ACETONIDE
     Indication: RHINITIS PERENNIAL
  18. METHOTREXATE. [Suspect]
     Active Substance: METHOTREXATE
     Indication: JUVENILE IDIOPATHIC ARTHRITIS
     Route: 058
  19. PREDNISONE. [Suspect]
     Active Substance: PREDNISONE
     Indication: JUVENILE IDIOPATHIC ARTHRITIS
     Route: 048
  20. ACTEMRA [Suspect]
     Active Substance: TOCILIZUMAB
     Indication: JUVENILE IDIOPATHIC ARTHRITIS
     Route: 042
  21. INFLIXIMAB [Suspect]
     Active Substance: INFLIXIMAB
     Route: 065

REACTIONS (23)
  - Arthritis [Unknown]
  - Bone density increased [Unknown]
  - Red blood cell sedimentation rate increased [Unknown]
  - Antibody test positive [Unknown]
  - Body height below normal [Unknown]
  - Juvenile idiopathic arthritis [Unknown]
  - Drug ineffective [Unknown]
  - Condition aggravated [Unknown]
  - Wheelchair user [Unknown]
  - Obesity [Unknown]
  - Psoriasis [Unknown]
  - Septic shock [Unknown]
  - C-reactive protein increased [Unknown]
  - Diarrhoea [Unknown]
  - Drug intolerance [Unknown]
  - Vomiting [Unknown]
  - Off label use [Unknown]
  - Human antichimeric antibody positive [Unknown]
  - Polyarthritis [Unknown]
  - Product use in unapproved indication [Unknown]
  - Adrenal insufficiency [Unknown]
  - Loss of personal independence in daily activities [Unknown]
  - Synovitis [Unknown]
